FAERS Safety Report 18141367 (Version 4)
Quarter: 2021Q1

REPORT INFORMATION
  Report Type: Spontaneous
  Country: US (occurrence: US)
  Receive Date: 20200812
  Receipt Date: 20210318
  Transmission Date: 20210419
  Serious: Yes (Other)
  Sender: FDA-Public Use
  Company Number: US-GLAXOSMITHKLINE-US2020154969

PATIENT
  Sex: Female

DRUGS (6)
  1. ZANTAC [Suspect]
     Active Substance: RANITIDINE HYDROCHLORIDE
     Indication: ARTHRITIS
     Dosage: 150 MG, QD
     Route: 065
     Dates: start: 198301, end: 200901
  2. RANITIDINE. [Suspect]
     Active Substance: RANITIDINE
     Indication: ARTHRITIS
     Dosage: 150 MG, QD
     Route: 065
     Dates: start: 200901, end: 202005
  3. ZANTAC [Suspect]
     Active Substance: RANITIDINE HYDROCHLORIDE
     Indication: ARTHRITIS
     Dosage: 150 MG, QD
     Route: 065
     Dates: start: 198301, end: 200901
  4. RANITIDINE. [Suspect]
     Active Substance: RANITIDINE
  5. RANITIDINE. [Suspect]
     Active Substance: RANITIDINE
     Indication: ARTHRITIS
     Dosage: 150 MG, QD
     Route: 065
     Dates: start: 200901, end: 202005
  6. ZANTAC [Suspect]
     Active Substance: RANITIDINE HYDROCHLORIDE

REACTIONS (3)
  - Bladder cancer [Unknown]
  - Breast cancer [Unknown]
  - Lung neoplasm malignant [Unknown]
